FAERS Safety Report 5094220-3 (Version None)
Quarter: 2006Q3

REPORT INFORMATION
  Report Type: 
  Country: None (occurrence: None)
  Receive Date: 20060831
  Receipt Date: 20060811
  Transmission Date: 20061208
  Serious: Yes (Hospitalization)
  Sender: FDA-Public Use
  Company Number: JP-BRISTOL-MYERS SQUIBB COMPANY-13481288

PATIENT
  Age: 42 Year
  Sex: Female

DRUGS (8)
  1. ABILIFY [Suspect]
     Indication: SCHIZOPHRENIA
     Route: 048
     Dates: start: 20060801, end: 20060803
  2. OLANZAPINE [Concomitant]
     Indication: SCHIZOAFFECTIVE DISORDER
     Route: 048
     Dates: start: 20011101
  3. LEVOMEPROMAZINE MALEATE [Concomitant]
     Indication: SCHIZOAFFECTIVE DISORDER
     Route: 048
     Dates: start: 20011101
  4. VALPROATE SODIUM [Concomitant]
     Indication: SCHIZOAFFECTIVE DISORDER
     Route: 048
     Dates: start: 20011101
  5. QUETIAPINE FUMARATE [Concomitant]
     Indication: SCHIZOAFFECTIVE DISORDER
     Route: 048
     Dates: start: 20011101
  6. PANTETHINE [Concomitant]
     Indication: CONSTIPATION
     Route: 048
     Dates: start: 20011101
  7. BROTIZOLAM [Concomitant]
     Indication: PROPHYLAXIS
     Route: 048
     Dates: start: 20060801, end: 20060803
  8. MOSAPRIDE CITRATE [Concomitant]
     Indication: PROPHYLAXIS
     Route: 048
     Dates: start: 20060801, end: 20060803

REACTIONS (2)
  - DELUSION [None]
  - HALLUCINATION [None]
